FAERS Safety Report 24056523 (Version 1)
Quarter: 2024Q3

REPORT INFORMATION
  Report Type: Spontaneous
  Country: DK (occurrence: DK)
  Receive Date: 20240705
  Receipt Date: 20240705
  Transmission Date: 20241017
  Serious: Yes (Hospitalization, Other)
  Sender: TEVA
  Company Number: None

PATIENT
  Age: 38 Year
  Sex: Male

DRUGS (2)
  1. IBUPROFEN [Interacting]
     Active Substance: IBUPROFEN
     Indication: Arthralgia
     Dosage: IBUPROFEN ^TEVA^
     Route: 048
     Dates: start: 20240307, end: 20240312
  2. WEGOVY [Interacting]
     Active Substance: SEMAGLUTIDE
     Indication: Overweight
     Dosage: DOSAGE: THE PATIENT STARTED TREATEMENT IN JUN2023 AND SINCE THEN INCREASED STEADILY TO 1.7 MG IN ...
     Route: 058
     Dates: start: 202312

REACTIONS (4)
  - Pancreatitis acute [Not Recovered/Not Resolved]
  - Decreased appetite [Unknown]
  - Drug interaction [Unknown]
  - Abdominal pain upper [Unknown]

NARRATIVE: CASE EVENT DATE: 20240301
